FAERS Safety Report 8258059-X (Version None)
Quarter: 2012Q2

REPORT INFORMATION
  Report Type: 
  Country: None (occurrence: None)
  Receive Date: 20120404
  Receipt Date: 20120328
  Transmission Date: 20120825
  Serious: Yes (Other)
  Sender: FDA-Public Use
  Company Number: US-BAYER-2012-031178

PATIENT
  Age: 61 Year
  Sex: Male

DRUGS (9)
  1. NEXAVAR [Suspect]
     Dosage: 400 MG, BID
  2. NEXAVAR [Suspect]
     Dosage: 400 MG, BID
  3. NEXAVAR [Suspect]
     Dosage: 400 MG, BID
  4. NEXAVAR [Suspect]
     Dosage: 400 MG, BID
  5. NEXAVAR [Suspect]
     Dosage: 400 MG, BID
  6. NEXAVAR [Suspect]
     Dosage: 400 MG, BID
  7. NEXAVAR [Suspect]
     Dosage: UNK
     Dates: end: 20120323
  8. NEXAVAR [Suspect]
     Indication: HEPATIC NEOPLASM MALIGNANT
     Dosage: 400 MG, BID
     Dates: start: 20110101
  9. NEXAVAR [Suspect]
     Dosage: 400 MG, BID

REACTIONS (2)
  - VOMITING [None]
  - HEPATIC NEOPLASM MALIGNANT [None]
